FAERS Safety Report 8965217 (Version 1)
Quarter: 2012Q4

REPORT INFORMATION
  Report Type: Report from Study
  Country: US (occurrence: US)
  Receive Date: 20121213
  Receipt Date: 20121213
  Transmission Date: 20130627
  Serious: Yes (Other)
  Sender: FDA-Public Use
  Company Number: US-ROCHE-1139488

PATIENT
  Age: 82 Year
  Sex: Male
  Weight: 69.46 kg

DRUGS (8)
  1. VEMURAFENIB [Suspect]
     Indication: METASTATIC MALIGNANT MELANOMA
     Route: 048
     Dates: start: 20120918, end: 20121002
  2. VEMURAFENIB [Suspect]
     Route: 065
     Dates: end: 20121016
  3. FLOMAX [Concomitant]
     Route: 065
  4. CLOBETASOL CREAM [Concomitant]
     Route: 065
  5. DOXYCYCLINE MONOHYDRATE [Concomitant]
     Dosage: 25 mg/5 ml
     Route: 048
  6. ASPIRIN [Concomitant]
     Route: 065
  7. FINASTERIDE [Concomitant]
     Route: 065
  8. FLUCONAZOLE [Concomitant]
     Dosage: 10 mg/ml
     Route: 048

REACTIONS (15)
  - Dysphagia [Unknown]
  - Erythema [Not Recovered/Not Resolved]
  - Mass [Not Recovered/Not Resolved]
  - Constipation [Not Recovered/Not Resolved]
  - Oedema peripheral [Not Recovered/Not Resolved]
  - Sunburn [Recovering/Resolving]
  - Burning sensation [Unknown]
  - Pharyngeal oedema [Unknown]
  - Swelling face [Unknown]
  - Auricular swelling [Unknown]
  - Stomatitis [Unknown]
  - Blister [Recovering/Resolving]
  - Blister [Recovering/Resolving]
  - Asthenia [Recovering/Resolving]
  - Arteriosclerosis [Unknown]
